FAERS Safety Report 19239468 (Version 1)
Quarter: 2021Q2

REPORT INFORMATION
  Report Type: Spontaneous
  Country: US (occurrence: US)
  Receive Date: 20210510
  Receipt Date: 20210510
  Transmission Date: 20210717
  Serious: Yes (Other)
  Sender: FDA-Public Use
  Company Number: US-PURDUE PHARMA-USA-2021-0254989

PATIENT
  Age: 75 Year
  Sex: Female
  Weight: 49.9 kg

DRUGS (2)
  1. OXYCONTIN [Suspect]
     Active Substance: OXYCODONE HYDROCHLORIDE
     Indication: PRODUCT USED FOR UNKNOWN INDICATION
     Dosage: 10 MG, [1 OR 2 TABLETS DAILY]
     Route: 048
  2. OXYCODONE HCL ER [Concomitant]
     Active Substance: OXYCODONE HYDROCHLORIDE
     Indication: RADIATION ASSOCIATED PAIN
     Dosage: 9 MG, TWICE
     Route: 065
     Dates: start: 20210422

REACTIONS (8)
  - Cataract [Unknown]
  - Visual impairment [Unknown]
  - Radiation overdose [Unknown]
  - White blood cell count decreased [Unknown]
  - Abnormal loss of weight [Unknown]
  - Pain in extremity [Unknown]
  - Cataract operation [Unknown]
  - Alopecia [Unknown]

NARRATIVE: CASE EVENT DATE: 20210420
